FAERS Safety Report 9938710 (Version 2)
Quarter: 2014Q2

REPORT INFORMATION
  Report Type: Spontaneous
  Country: US (occurrence: US)
  Receive Date: 20140303
  Receipt Date: 20140512
  Transmission Date: 20141212
  Serious: Yes (Hospitalization)
  Sender: FDA-Public Use
  Company Number: US-BAYER-2014-031557

PATIENT
  Age: 34 Year
  Sex: Female
  Weight: 51.7 kg

DRUGS (4)
  1. MIRENA [Suspect]
     Indication: CONTRACEPTION
     Dosage: 20 MCG/24HR, CONT
     Route: 015
     Dates: start: 20070604, end: 20120224
  2. DIFLUCAN [Concomitant]
  3. NUVARING [Concomitant]
  4. FLAGYL [Concomitant]

REACTIONS (9)
  - Uterine perforation [None]
  - Device issue [None]
  - Device failure [None]
  - Procedural pain [None]
  - Emotional distress [None]
  - Mental disorder [None]
  - Pain [None]
  - Abdominal pain [None]
  - Injury [None]
